FAERS Safety Report 5020144-3 (Version None)
Quarter: 2006Q2

REPORT INFORMATION
  Report Type: 
  Country: None (occurrence: None)
  Receive Date: 20060602
  Receipt Date: 20060512
  Transmission Date: 20061013
  Serious: Yes (Other)
  Sender: FDA-Public Use
  Company Number: DE200605001121

PATIENT
  Age: 20 Year
  Sex: Female
  Weight: 64 kg

DRUGS (2)
  1. STRATTERA [Suspect]
     Dosage: 600 MG, OTHER, ORAL
     Route: 048
     Dates: start: 20060401, end: 20060401
  2. ALCOHOL (ETHANOL) [Concomitant]

REACTIONS (4)
  - AGITATION [None]
  - ALCOHOL USE [None]
  - INCORRECT DOSE ADMINISTERED [None]
  - SUICIDE ATTEMPT [None]
